FAERS Safety Report 15291944 (Version 1)
Quarter: 2018Q3

REPORT INFORMATION
  Report Type: Spontaneous
  Country: US (occurrence: US)
  Receive Date: 20180817
  Receipt Date: 20180817
  Transmission Date: 20181010
  Serious: Yes (Other)
  Sender: FDA-Public Use
  Company Number: US-AMGEN-USASP2018110533

PATIENT
  Age: 72 Year
  Sex: Female

DRUGS (2)
  1. PROLIA [Suspect]
     Active Substance: DENOSUMAB
     Indication: PRODUCT USED FOR UNKNOWN INDICATION
     Dosage: UNK
     Route: 065
  2. TYLENOL [Concomitant]
     Active Substance: ACETAMINOPHEN
     Indication: ARTHRITIS

REACTIONS (11)
  - Body height decreased [Unknown]
  - Hyperparathyroidism [Unknown]
  - Joint dislocation [Unknown]
  - Neuropathy peripheral [Unknown]
  - Blood sodium increased [Unknown]
  - Feeling abnormal [Unknown]
  - Bone disorder [Unknown]
  - Intervertebral disc protrusion [Unknown]
  - Diabetes insipidus [Unknown]
  - Neck surgery [Unknown]
  - Headache [Unknown]
